FAERS Safety Report 10310374 (Version 2)
Quarter: 2014Q3

REPORT INFORMATION
  Report Type: Spontaneous
  Country: US (occurrence: US)
  Receive Date: 20140717
  Receipt Date: 20140717
  Transmission Date: 20150326
  Serious: No
  Sender: FDA-Public Use
  Company Number: US-DRREDDYS-USA/USA/14/0040067

PATIENT
  Age: 43 Year
  Sex: Female

DRUGS (1)
  1. ZENATANE [Suspect]
     Active Substance: ISOTRETINOIN
     Indication: PRODUCT USED FOR UNKNOWN INDICATION
     Route: 065
     Dates: start: 20140405

REACTIONS (5)
  - Chest pain [Unknown]
  - Myalgia [Unknown]
  - Vision blurred [Unknown]
  - Dry skin [Unknown]
  - Lip dry [Unknown]
